FAERS Safety Report 9664815 (Version 1)
Quarter: 2013Q4

REPORT INFORMATION
  Report Type: Spontaneous
  Country: US (occurrence: US)
  Receive Date: 20131101
  Receipt Date: 20131101
  Transmission Date: 20140711
  Serious: Yes (Other)
  Sender: FDA-Public Use
  Company Number: US-TAKEDA-2013TUS001900

PATIENT
  Sex: 0

DRUGS (5)
  1. ACTOS [Suspect]
  2. METFORMIN HYDROCHLORIDE [Suspect]
  3. VICTOZA [Concomitant]
     Dosage: UNK
     Dates: start: 201308
  4. LANTUS [Concomitant]
  5. LEVEMIR [Concomitant]
     Dosage: UNK
     Dates: start: 201308

REACTIONS (1)
  - Renal failure [Unknown]
